FAERS Safety Report 4795894-4 (Version None)
Quarter: 2005Q4

REPORT INFORMATION
  Report Type: 
  Country: None (occurrence: None)
  Receive Date: 20051012
  Receipt Date: 20051003
  Transmission Date: 20060501
  Serious: Yes (Hospitalization)
  Sender: FDA-Public Use
  Company Number: US-MERCK-0510USA02322

PATIENT
  Age: 57 Year
  Sex: Male
  Weight: 92 kg

DRUGS (7)
  1. VIOXX [Suspect]
     Indication: MUSCLE DISORDER
     Route: 048
     Dates: end: 20040101
  2. VIOXX [Suspect]
     Indication: BONE DISORDER
     Route: 048
     Dates: end: 20040101
  3. LITHIUM CARBONATE [Concomitant]
     Route: 065
  4. LIDODERM [Concomitant]
     Route: 065
  5. MIRALAX [Concomitant]
     Route: 065
  6. TYLENOL (CAPLET) [Concomitant]
     Route: 065
  7. DIAZEPAM [Concomitant]
     Route: 065

REACTIONS (4)
  - ANXIETY DISORDER [None]
  - BIPOLAR DISORDER [None]
  - CARDIAC DISORDER [None]
  - MENTAL DISORDER [None]
